FAERS Safety Report 4318191-X (Version None)
Quarter: 2004Q1

REPORT INFORMATION
  Report Type: 
  Country: None (occurrence: None)
  Receive Date: 20040315
  Receipt Date: 20040302
  Transmission Date: 20041129
  Serious: Yes (Hospitalization)
  Sender: FDA-Public Use
  Company Number: 2004UW02199

PATIENT
  Age: 51 Year
  Sex: Male
  Weight: 74.8435 kg

DRUGS (4)
  1. CRESTOR [Suspect]
     Indication: HYPERLIPIDAEMIA
     Dosage: 10 MG DAILY PO
     Route: 048
     Dates: start: 20040112, end: 20030115
  2. ASPIRIN [Concomitant]
  3. EFFEXOR XR [Concomitant]
  4. TIKOSYN [Concomitant]

REACTIONS (2)
  - ATRIAL FIBRILLATION [None]
  - DISEASE RECURRENCE [None]
